FAERS Safety Report 23656363 (Version 1)
Quarter: 2024Q1

REPORT INFORMATION
  Report Type: Spontaneous
  Country: US (occurrence: None)
  Receive Date: 20240321
  Receipt Date: 20240321
  Transmission Date: 20240410
  Serious: No
  Sender: FDA-Public Use
  Company Number: 2024A056424

PATIENT

DRUGS (1)
  1. CALQUENCE [Suspect]
     Active Substance: ACALABRUTINIB
     Route: 048

REACTIONS (8)
  - Feeling abnormal [Unknown]
  - Drug hypersensitivity [Unknown]
  - Rash [Unknown]
  - Pyrexia [Unknown]
  - Mouth swelling [Unknown]
  - Lip swelling [Unknown]
  - Stomatitis [Unknown]
  - Lip exfoliation [Unknown]
